FAERS Safety Report 20858728 (Version 2)
Quarter: 2022Q2

REPORT INFORMATION
  Report Type: Spontaneous
  Country: CO (occurrence: CO)
  Receive Date: 20220522
  Receipt Date: 20220613
  Transmission Date: 20220720
  Serious: Yes (Other)
  Sender: FDA-Public Use
  Company Number: CO-AMGEN-COLSP2022085323

PATIENT
  Age: 56 Year
  Sex: Female

DRUGS (9)
  1. ADALIMUMAB [Suspect]
     Active Substance: ADALIMUMAB
     Indication: Rheumatoid arthritis
     Dosage: 40 MILLIGRAM, Q2WK
     Route: 058
     Dates: start: 2017
  2. LEFLUNOMIDE [Concomitant]
     Active Substance: LEFLUNOMIDE
  3. PREDNISOLONE [Concomitant]
     Active Substance: PREDNISOLONE
  4. AMLODIPINE [Concomitant]
     Active Substance: AMLODIPINE BESYLATE
  5. LOSARTAN [Concomitant]
     Active Substance: LOSARTAN
  6. HYDROCHLOROTHIAZIDE [Concomitant]
     Active Substance: HYDROCHLOROTHIAZIDE
     Dosage: UNK
  7. RANITIDINE [Concomitant]
     Active Substance: RANITIDINE
  8. CHLOROQUINE [Concomitant]
     Active Substance: CHLOROQUINE
  9. METHOTREXATE [Concomitant]
     Active Substance: METHOTREXATE

REACTIONS (2)
  - Tubulointerstitial nephritis [Recovered/Resolved]
  - Normocytic anaemia [Unknown]

NARRATIVE: CASE EVENT DATE: 20180101
